FAERS Safety Report 8592382-4 (Version None)
Quarter: 2012Q3

REPORT INFORMATION
  Report Type: 
  Country: None (occurrence: None)
  Receive Date: 20120814
  Receipt Date: 20120808
  Transmission Date: 20120928
  Serious: Yes (Life-Threatening)
  Sender: FDA-Public Use
  Company Number: GB-009507513-1208GBR004689

PATIENT

DRUGS (9)
  1. RITONAVIR [Interacting]
     Indication: HIV INFECTION
  2. EMTRICITABINE [Interacting]
     Indication: HIV INFECTION
  3. TENOFOVIR DISOPROXIL FUMARATE [Interacting]
     Indication: HIV INFECTION
  4. ZOCOR [Suspect]
     Indication: HYPERCHOLESTEROLAEMIA
     Route: 048
  5. FOSAMPRENAVIR CALCIUM [Interacting]
     Indication: HIV INFECTION
  6. PRAVASTATIN SODIUM [Concomitant]
     Indication: HYPERCHOLESTEROLAEMIA
  7. ASPIRIN [Concomitant]
  8. CLOPIDOGREL [Concomitant]
  9. GLICLAZIDE [Concomitant]
     Indication: DIABETES MELLITUS

REACTIONS (1)
  - DRUG INTERACTION [None]
